FAERS Safety Report 7215012-2 (Version None)
Quarter: 2011Q1

REPORT INFORMATION
  Report Type: 
  Country: None (occurrence: None)
  Receive Date: 20110107
  Receipt Date: 20100628
  Transmission Date: 20110831
  Serious: No
  Sender: FDA-Public Use
  Company Number: A0869119A

PATIENT
  Age: 65 Year
  Sex: Female

DRUGS (4)
  1. HYDROCHLOROTHIAZIDE [Concomitant]
  2. LOVAZA [Suspect]
     Indication: BLOOD CHOLESTEROL INCREASED
     Dosage: 4G PER DAY
     Route: 048
     Dates: start: 20090101
  3. ASPIRIN [Concomitant]
  4. SIMVASTATIN [Concomitant]

REACTIONS (1)
  - RASH [None]
